FAERS Safety Report 24637704 (Version 1)
Quarter: 2024Q4

REPORT INFORMATION
  Report Type: Spontaneous
  Country: US (occurrence: US)
  Receive Date: 20241119
  Receipt Date: 20241119
  Transmission Date: 20250115
  Serious: No
  Sender: PFIZER
  Company Number: US-PFIZER INC-PV202400149512

PATIENT
  Age: 82 Year
  Sex: Male
  Weight: 82.6 kg

DRUGS (5)
  1. VYNDAMAX [Suspect]
     Active Substance: TAFAMIDIS
     Indication: Cardiac amyloidosis
     Dosage: 61 MG CAPSULE TAKE 1 CAPSULE BY MOUTH 1 (ONE) TIME EACH DAY ORAL
     Route: 048
  2. VYNDAMAX [Suspect]
     Active Substance: TAFAMIDIS
     Indication: Cardiac failure
  3. VYNDAMAX [Suspect]
     Active Substance: TAFAMIDIS
     Indication: Ejection fraction
  4. VYNDAMAX [Suspect]
     Active Substance: TAFAMIDIS
     Indication: Cardiac failure chronic
  5. XALATAN [Concomitant]
     Active Substance: LATANOPROST
     Dosage: 1 DF, 2X/DAY (ADMINISTER 1 DROP INTO BOTH EYES IN THE MORNING AND AT BEDTIME)

REACTIONS (6)
  - Red blood cell count decreased [Unknown]
  - Haemoglobin decreased [Unknown]
  - Haematocrit decreased [Unknown]
  - Blood creatine increased [Unknown]
  - Glomerular filtration rate decreased [Unknown]
  - Blood chloride increased [Unknown]
